FAERS Safety Report 8786420 (Version 4)
Quarter: 2013Q4

REPORT INFORMATION
  Report Type: Spontaneous
  Country: US (occurrence: US)
  Receive Date: 20120914
  Receipt Date: 20131108
  Transmission Date: 20140711
  Serious: Yes (Hospitalization, Other)
  Sender: FDA-Public Use
  Company Number: US-009507513-2011SP040937

PATIENT
  Age: 23 Year
  Sex: Female
  Weight: 122.47 kg

DRUGS (2)
  1. NUVARING [Suspect]
     Indication: CONTRACEPTION
     Dates: start: 200811, end: 20090903
  2. NUVARING [Suspect]
     Indication: MENSTRUAL CYCLE MANAGEMENT

REACTIONS (21)
  - Loss of consciousness [Unknown]
  - Pulmonary embolism [Unknown]
  - Joint swelling [Unknown]
  - Chest pain [Unknown]
  - Dyspnoea [Unknown]
  - Arthralgia [Unknown]
  - Pneumonia [Unknown]
  - Laceration [Unknown]
  - Lung disorder [Unknown]
  - Asthma [Unknown]
  - Papilloma viral infection [Unknown]
  - Sexually transmitted disease [Unknown]
  - Thrombosis [Unknown]
  - Depression [Unknown]
  - Cystitis haemorrhagic [Unknown]
  - Headache [Unknown]
  - Meningitis viral [Recovering/Resolving]
  - Pyrexia [Recovering/Resolving]
  - Viral infection [Recovering/Resolving]
  - Ligament sprain [Unknown]
  - Deep vein thrombosis [Unknown]
